FAERS Safety Report 24541790 (Version 2)
Quarter: 2025Q2

REPORT INFORMATION
  Report Type: Report from Study
  Country: US (occurrence: US)
  Receive Date: 20241023
  Receipt Date: 20250617
  Transmission Date: 20250716
  Serious: No
  Sender: SUNOVION
  Company Number: US-SUMITOMO PHARMA SWITZERLAND GMBH-2024SPA004024

PATIENT

DRUGS (3)
  1. ORGOVYX [Suspect]
     Active Substance: RELUGOLIX
     Indication: Prostate cancer
     Route: 048
     Dates: start: 20230717, end: 20230717
  2. ORGOVYX [Suspect]
     Active Substance: RELUGOLIX
     Dosage: 120 MG, ONCE QD
     Route: 048
     Dates: start: 20230718
  3. XTANDI [Concomitant]
     Active Substance: ENZALUTAMIDE
     Route: 065

REACTIONS (2)
  - Penis disorder [Unknown]
  - Blood pressure increased [Unknown]
